FAERS Safety Report 18924058 (Version 1)
Quarter: 2021Q1

REPORT INFORMATION
  Report Type: Report from Study
  Country: BR (occurrence: BR)
  Receive Date: 20210222
  Receipt Date: 20210222
  Transmission Date: 20210420
  Serious: Yes (Other)
  Sender: FDA-Public Use
  Company Number: NVSC2020BR276732

PATIENT
  Sex: Female

DRUGS (3)
  1. QUETIAPINE. [Suspect]
     Active Substance: QUETIAPINE
     Indication: FIBROMYALGIA
     Dosage: 1 DF, QD
     Route: 048
  2. FOLIC ACID. [Concomitant]
     Active Substance: FOLIC ACID
     Indication: PRODUCT USED FOR UNKNOWN INDICATION
     Dosage: 1 DF, QW
     Route: 048
  3. DULOXETINE. [Suspect]
     Active Substance: DULOXETINE
     Indication: ANTIDEPRESSANT THERAPY
     Dosage: 1 DF, QD
     Route: 048

REACTIONS (27)
  - Arthritis [Not Recovered/Not Resolved]
  - Immunosuppression [Not Recovered/Not Resolved]
  - Gastrooesophageal reflux disease [Not Recovered/Not Resolved]
  - Blood cholesterol increased [Not Recovered/Not Resolved]
  - Joint swelling [Not Recovered/Not Resolved]
  - Arthralgia [Recovering/Resolving]
  - Psoriasis [Recovered/Resolved]
  - Fibromyalgia [Not Recovered/Not Resolved]
  - Insomnia [Not Recovered/Not Resolved]
  - Psoriatic arthropathy [Not Recovered/Not Resolved]
  - Pain [Unknown]
  - Wound [Unknown]
  - Paraesthesia [Not Recovered/Not Resolved]
  - Malaise [Unknown]
  - Intervertebral disc space narrowing [Unknown]
  - Hypokinesia [Not Recovered/Not Resolved]
  - Headache [Unknown]
  - Plantar fasciitis [Unknown]
  - Anaemia [Unknown]
  - Thirst [Not Recovered/Not Resolved]
  - Decreased appetite [Unknown]
  - Parkinson^s disease [Not Recovered/Not Resolved]
  - Neuralgia [Not Recovered/Not Resolved]
  - Pulmonary fibrosis [Not Recovered/Not Resolved]
  - Nausea [Not Recovered/Not Resolved]
  - Dizziness [Not Recovered/Not Resolved]
  - Osteosclerosis [Unknown]

NARRATIVE: CASE EVENT DATE: 2000
